FAERS Safety Report 4498612-2 (Version None)
Quarter: 2004Q4

REPORT INFORMATION
  Report Type: 
  Country: None (occurrence: None)
  Receive Date: 20041111
  Receipt Date: 20041020
  Transmission Date: 20050328
  Serious: Yes (Hospitalization)
  Sender: FDA-Public Use
  Company Number: GB-JNJFOC-20041006195

PATIENT
  Sex: Male

DRUGS (5)
  1. REMICADE [Suspect]
     Dosage: 2ND INFUSION
     Route: 042
  2. REMICADE [Suspect]
     Indication: RHEUMATOID ARTHRITIS
     Dosage: 1ST INFUSION, EXACT DATE UNKNOWN
     Route: 042
  3. ZIMOVANE [Suspect]
     Indication: INSOMNIA
  4. METHOTREXATE [Concomitant]
  5. STEROIDS [Concomitant]

REACTIONS (5)
  - ALLERGY TO CHEMICALS [None]
  - EYE SWELLING [None]
  - OEDEMA PERIPHERAL [None]
  - RASH [None]
  - TYPE IV HYPERSENSITIVITY REACTION [None]
